FAERS Safety Report 9603346 (Version 1)
Quarter: 2013Q4

REPORT INFORMATION
  Report Type: Spontaneous
  Country: GB (occurrence: GB)
  Receive Date: 20131007
  Receipt Date: 20131007
  Transmission Date: 20140711
  Serious: Yes (Other)
  Sender: FDA-Public Use
  Company Number: GB-TEVA-434940ISR

PATIENT
  Age: 27 Year
  Sex: Female
  Weight: 72.1 kg

DRUGS (10)
  1. ONDANSETRON [Suspect]
     Indication: PROPHYLAXIS OF NAUSEA AND VOMITING
     Dosage: 4MG WHEN REQUIRED ORALLY MAX. 3 TIMES A DAY. GIVEN ON 3RD DAY AT 21.50.
     Route: 048
     Dates: start: 20130907, end: 20130911
  2. TRAMADOL [Suspect]
     Indication: PAIN
     Dosage: 50MG PRN (ON ADMISSION). INPATIENT: 100MG PRN. MAX 4 TIMES A DAY. GIVEN ON THE 3RD DAY AT 21.45.
     Route: 048
     Dates: start: 20130907
  3. CYCLIZINE [Suspect]
     Indication: PROPHYLAXIS OF NAUSEA AND VOMITING
     Dosage: 50MG ORALLY WHEN REQUIRED. MAX THREE TIMES A DAY. GIVEN ON THE 3RD DAY AT 19:00.
     Route: 048
     Dates: start: 20130907, end: 20130911
  4. ENOXAPARIN [Concomitant]
     Dosage: 40MG S/C AT NIGHT (INPATIENT).
     Route: 058
  5. PARACETAMOL [Concomitant]
     Dosage: 1G 4 TIMES A DAY (INPATIENT).
  6. SALBUTAMOL [Concomitant]
     Indication: ASTHMA
     Dosage: 1-2 PUFFS WHEN REQUIRED (TAKING ON ADMISSION).
     Route: 055
  7. IBUPROFEN [Concomitant]
     Dosage: ONE WHEN REQUIRED (TAKING ON ADMISSION-STOPPED).
  8. CO-CODAMOL [Concomitant]
     Dosage: 30/500MG. 2 TABLETS WHEN REQUIRED (TAKING ON ADMISSION-STOPPED).
  9. ORAMORPH [Concomitant]
     Dosage: 2-10MG WHEN REQUIRED (AS AN INPATIENT).
  10. METOCLOPRAMIDE [Concomitant]
     Dosage: 10MG WHEN REQUIRED.
     Dates: start: 20130911

REACTIONS (6)
  - Convulsion [Recovered/Resolved]
  - Loss of consciousness [Recovered/Resolved]
  - Tremor [Recovered/Resolved]
  - Chest discomfort [Unknown]
  - Feeling abnormal [Unknown]
  - Pallor [Unknown]
